FAERS Safety Report 23211300 (Version 2)
Quarter: 2024Q1

REPORT INFORMATION
  Report Type: Spontaneous
  Country: IL (occurrence: IL)
  Receive Date: 20231121
  Receipt Date: 20240208
  Transmission Date: 20240410
  Serious: Yes (Hospitalization, Other)
  Sender: FDA-Public Use
  Company Number: IL-TEVAIL-2023-IL-2947522

PATIENT
  Age: 53 Year
  Sex: Male

DRUGS (1)
  1. DICLOFENAC [Suspect]
     Active Substance: DICLOFENAC
     Indication: Arthralgia
     Dosage: DOSAGE TEXT: 75 MG
     Route: 030

REACTIONS (3)
  - Haemorrhage intracranial [Recovering/Resolving]
  - Hemiparesis [Recovering/Resolving]
  - Cognitive disorder [Recovered/Resolved]
